FAERS Safety Report 6193065-0 (Version None)
Quarter: 2009Q2

REPORT INFORMATION
  Report Type: 
  Country: None (occurrence: None)
  Receive Date: 20090513
  Receipt Date: 20090513
  Transmission Date: 20091009
  Serious: Yes (Hospitalization)
  Sender: FDA-Public Use
  Company Number: None

PATIENT
  Age: 84 Year
  Sex: Female
  Weight: 63.5 kg

DRUGS (2)
  1. XIENCE V STENT ABBOTT VASCULAR [Suspect]
     Indication: IN-STENT CORONARY ARTERY RESTENOSIS
     Dosage: 2.75MM X 28MM INTRACARDIAC
     Route: 016
     Dates: start: 20081111, end: 20081111
  2. XIENCE V STENT  ABBOTT VASCULAR [Suspect]
     Indication: IN-STENT CORONARY ARTERY RESTENOSIS
     Dosage: 3.0MM X 12MM INTRACARDIAC
     Route: 016
     Dates: start: 20081111, end: 20081111

REACTIONS (4)
  - ATRIAL FIBRILLATION [None]
  - CARDIAC FAILURE CONGESTIVE [None]
  - CONDITION AGGRAVATED [None]
  - POST PROCEDURAL COMPLICATION [None]
